FAERS Safety Report 5468654-9 (Version None)
Quarter: 2007Q3

REPORT INFORMATION
  Report Type: 
  Country: None (occurrence: None)
  Receive Date: 20070921
  Receipt Date: 20070911
  Transmission Date: 20080115
  Serious: Yes (Death, Life-Threatening)
  Sender: FDA-Public Use
  Company Number: 2007P1000646

PATIENT
  Age: 43 Year
  Sex: Male

DRUGS (5)
  1. BUSULFAN           (BUSULFAN) [Suspect]
     Indication: STEM CELL TRANSPLANT
     Dosage: 36 ML;QD;IV
     Route: 042
     Dates: start: 20070322, end: 20070325
  2. NEUPOGEN [Concomitant]
  3. FLUDARABINE PHOSPHATE [Concomitant]
  4. VALPROATE SODIUM [Concomitant]
  5. TACROLIMUS [Concomitant]

REACTIONS (6)
  - ACUTE GRAFT VERSUS HOST DISEASE [None]
  - HAEMODIALYSIS [None]
  - MENINGITIS VIRAL [None]
  - RENAL IMPAIRMENT [None]
  - SEPSIS [None]
  - STEM CELL TRANSPLANT [None]
